FAERS Safety Report 11106361 (Version 2)
Quarter: 2015Q2

REPORT INFORMATION
  Report Type: Spontaneous
  Country: JP (occurrence: JP)
  Receive Date: 20150512
  Receipt Date: 20150518
  Transmission Date: 20150821
  Serious: Yes (Hospitalization)
  Sender: FDA-Public Use
  Company Number: JP-PFIZER INC-2015158721

PATIENT
  Age: 6 Decade
  Sex: Female

DRUGS (5)
  1. AMLODIN [Suspect]
     Active Substance: AMLODIPINE BESYLATE
     Indication: HYPERTENSION
     Dosage: 10 MG, DAILY
     Route: 048
     Dates: end: 201504
  2. ROZEREM [Suspect]
     Active Substance: RAMELTEON
     Dosage: UNK
     Route: 048
  3. OLMETEC [Suspect]
     Active Substance: OLMESARTAN MEDOXOMIL
     Dosage: UNK
     Route: 048
  4. MEILAX [Suspect]
     Active Substance: ETHYL LOFLAZEPATE
     Dosage: UNK
     Route: 048
  5. AMLODIN [Suspect]
     Active Substance: AMLODIPINE BESYLATE
     Dosage: 2.5 UNK, UNK
     Route: 048
     Dates: start: 201504

REACTIONS (3)
  - Seizure [Not Recovered/Not Resolved]
  - Muscle spasms [Not Recovered/Not Resolved]
  - Gait disturbance [Not Recovered/Not Resolved]

NARRATIVE: CASE EVENT DATE: 20150420
